FAERS Safety Report 6064588-X (Version None)
Quarter: 2009Q1

REPORT INFORMATION
  Report Type: 
  Country: None (occurrence: None)
  Receive Date: 20090204
  Receipt Date: 20090127
  Transmission Date: 20090719
  Serious: Yes (Hospitalization)
  Sender: FDA-Public Use
  Company Number: B0556220A

PATIENT
  Age: 5 Month
  Sex: Male
  Weight: 8 kg

DRUGS (1)
  1. ZOVIRAX [Suspect]
     Dosage: 40MGK THREE TIMES PER DAY
     Route: 042
     Dates: start: 20081220, end: 20081222

REACTIONS (4)
  - ACCIDENTAL OVERDOSE [None]
  - BLOOD CREATININE INCREASED [None]
  - MEDICATION ERROR [None]
  - TRANSAMINASES INCREASED [None]
